FAERS Safety Report 19086341 (Version 1)
Quarter: 2021Q2

REPORT INFORMATION
  Report Type: Spontaneous
  Country: US (occurrence: US)
  Receive Date: 20210401
  Receipt Date: 20210401
  Transmission Date: 20210717
  Serious: Yes (Other)
  Sender: FDA-Public Use
  Company Number: None

PATIENT
  Age: 44 Year
  Sex: Male
  Weight: 108 kg

DRUGS (3)
  1. DEXTROAMPHETAMINE 10MG TAB COMMON BRANDS: DEXEDRINE [Suspect]
     Active Substance: DEXTROAMPHETAMINE
     Indication: ATTENTION DEFICIT HYPERACTIVITY DISORDER
     Dosage: ?          QUANTITY:2 TABLET(S);?
     Route: 048
     Dates: start: 20210327
  2. ADVIL [Concomitant]
     Active Substance: IBUPROFEN
  3. ALPRAZOLAM. [Concomitant]
     Active Substance: ALPRAZOLAM

REACTIONS (16)
  - Anxiety [None]
  - Feeling jittery [None]
  - Agitation [None]
  - Feeling abnormal [None]
  - Drug ineffective [None]
  - Fatigue [None]
  - Cold sweat [None]
  - Product formulation issue [None]
  - Apathy [None]
  - Product substitution issue [None]
  - Change in sustained attention [None]
  - Headache [None]
  - Insomnia [None]
  - Adulterated product [None]
  - Irritability [None]
  - Blood pressure increased [None]

NARRATIVE: CASE EVENT DATE: 20210327
